FAERS Safety Report 5910218-4 (Version None)
Quarter: 2008Q4

REPORT INFORMATION
  Report Type: 
  Country: None (occurrence: None)
  Receive Date: 20081007
  Receipt Date: 20071016
  Transmission Date: 20090506
  Serious: No
  Sender: FDA-Public Use
  Company Number: US-ASTRAZENECA-2007UW24197

PATIENT
  Sex: Female

DRUGS (2)
  1. ARIMIDEX [Suspect]
     Route: 048
     Dates: start: 20030101
  2. LUNESTA [Concomitant]
     Dates: start: 20040101

REACTIONS (2)
  - CARDIAC DISORDER [None]
  - INSOMNIA [None]
